FAERS Safety Report 8258750-5 (Version None)
Quarter: 2012Q1

REPORT INFORMATION
  Report Type: 
  Country: None (occurrence: None)
  Receive Date: 20120322
  Receipt Date: 20120202
  Transmission Date: 20120608
  Serious: Yes (Hospitalization)
  Sender: FDA-Public Use
  Company Number: UTC-015179

PATIENT
  Age: 53 Year
  Sex: Female
  Weight: 102.3 kg

DRUGS (1)
  1. TYVASO [Suspect]
     Indication: PULMONARY ARTERIAL HYPERTENSION
     Dosage: 18 TO 54 MICROGRAMS, INHALATION
     Route: 055
     Dates: start: 20110207

REACTIONS (1)
  - INTERVERTEBRAL DISC PROTRUSION [None]
